FAERS Safety Report 20484697 (Version 1)
Quarter: 2022Q1

REPORT INFORMATION
  Report Type: Spontaneous
  Country: CN (occurrence: None)
  Receive Date: 20220217
  Receipt Date: 20220217
  Transmission Date: 20220424
  Serious: Yes (Other)
  Sender: FDA-Public Use
  Company Number: 2022A069954

PATIENT
  Age: 85 Year
  Sex: Male

DRUGS (7)
  1. TICAGRELOR [Suspect]
     Active Substance: TICAGRELOR
     Indication: Acute myocardial infarction
     Dosage: 180.0MG UNKNOWN
     Route: 048
  2. TICAGRELOR [Suspect]
     Active Substance: TICAGRELOR
     Indication: Acute myocardial infarction
     Dosage: 90.0MG UNKNOWN
     Route: 048
     Dates: start: 20190612, end: 20190613
  3. HEPARIN CALCIUM [Suspect]
     Active Substance: HEPARIN CALCIUM
     Indication: Acute myocardial infarction
     Dosage: 3000.00 UNITS, TWICE EVERY ONE DAY
     Route: 058
     Dates: start: 20190612, end: 20190613
  4. HEPARIN CALCIUM [Suspect]
     Active Substance: HEPARIN CALCIUM
     Indication: Anticoagulant therapy
     Dosage: 3000.00 UNITS, TWICE EVERY ONE DAY
     Route: 058
     Dates: start: 20190612, end: 20190613
  5. TIROFIBAN HYDROCHLORIDE [Suspect]
     Active Substance: TIROFIBAN HYDROCHLORIDE
     Indication: Acute myocardial infarction
     Route: 041
     Dates: start: 20190612, end: 20190613
  6. TIROFIBAN HYDROCHLORIDE [Suspect]
     Active Substance: TIROFIBAN HYDROCHLORIDE
     Indication: Antiplatelet therapy
     Route: 041
     Dates: start: 20190612, end: 20190613
  7. ASPIRIN [Concomitant]
     Active Substance: ASPIRIN
     Dosage: 300.0MG UNKNOWN

REACTIONS (1)
  - Heparin-induced thrombocytopenia [Recovering/Resolving]

NARRATIVE: CASE EVENT DATE: 20190613
